FAERS Safety Report 6520830-X (Version None)
Quarter: 2009Q4

REPORT INFORMATION
  Report Type: 
  Country: None (occurrence: None)
  Receive Date: 20091229
  Receipt Date: 20091217
  Transmission Date: 20100525
  Serious: Yes (Death, Other)
  Sender: FDA-Public Use
  Company Number: US-ELI_LILLY_AND_COMPANY-US200912004263

PATIENT
  Sex: Male

DRUGS (4)
  1. ZYPREXA [Suspect]
     Dosage: 2.5 MG, UNK
     Dates: start: 20091027
  2. ZYPREXA [Suspect]
     Dosage: 5 MG, UNK
     Dates: start: 20091028
  3. HALDOL [Concomitant]
  4. MORPHINE [Concomitant]

REACTIONS (3)
  - CARDIAC ARREST [None]
  - DEATH [None]
  - HYPOTENSION [None]
